FAERS Safety Report 15316416 (Version 2)
Quarter: 2018Q3

REPORT INFORMATION
  Report Type: Report from Study
  Country: IT (occurrence: US)
  Receive Date: 20180824
  Receipt Date: 20180905
  Transmission Date: 20181010
  Serious: Yes (Other)
  Sender: FDA-Public Use
  Company Number: IT-BAYER-2018-159939

PATIENT
  Age: 77 Year
  Sex: Female

DRUGS (8)
  1. SIMVASTATIN. [Suspect]
     Active Substance: SIMVASTATIN
  2. ROSUVASTATIN. [Suspect]
     Active Substance: ROSUVASTATIN
  3. COLESTIPOL [Suspect]
     Active Substance: COLESTIPOL
  4. DIPYRIDAMOLE. [Suspect]
     Active Substance: DIPYRIDAMOLE
  5. ACETYLSALICYLIC ACID [Suspect]
     Active Substance: ASPIRIN
  6. ATORVASTATIN [Suspect]
     Active Substance: ATORVASTATIN
  7. PRAVASTATIN. [Suspect]
     Active Substance: PRAVASTATIN
  8. LOVASTATIN. [Suspect]
     Active Substance: LOVASTATIN

REACTIONS (2)
  - Myopathy [None]
  - Rhabdomyolysis [None]
